FAERS Safety Report 9495930 (Version 1)
Quarter: 2013Q3

REPORT INFORMATION
  Report Type: Spontaneous
  Country: FR (occurrence: FR)
  Receive Date: 20130903
  Receipt Date: 20130903
  Transmission Date: 20140515
  Serious: Yes (Hospitalization)
  Sender: FDA-Public Use
  Company Number: FR-ROCHE-1268787

PATIENT
  Age: 56 Year
  Sex: Female

DRUGS (10)
  1. ROCEPHINE [Suspect]
     Indication: ENDOCARDITIS
     Route: 042
     Dates: start: 20120216
  2. GENTAMICIN [Suspect]
     Indication: ENDOCARDITIS
     Route: 042
     Dates: start: 20120216, end: 20120227
  3. LASILIX [Suspect]
     Indication: HYPERTENSION
     Route: 048
  4. JANUMET [Suspect]
     Indication: TYPE 2 DIABETES MELLITUS
     Route: 048
  5. DOXYCYCLINE [Concomitant]
     Indication: ENDOCARDITIS
     Route: 048
     Dates: start: 20120216
  6. PREVISCAN (FRANCE) [Concomitant]
     Route: 048
  7. KARDEGIC [Concomitant]
     Route: 048
  8. KALEORID [Concomitant]
     Route: 048
  9. CORDARONE [Concomitant]
     Route: 048
  10. INEXIUM [Concomitant]
     Route: 048

REACTIONS (1)
  - Renal failure acute [Recovered/Resolved]
